FAERS Safety Report 8170475-3 (Version None)
Quarter: 2012Q1

REPORT INFORMATION
  Report Type: 
  Country: None (occurrence: None)
  Receive Date: 20120228
  Receipt Date: 20120223
  Transmission Date: 20120608
  Serious: No
  Sender: FDA-Public Use
  Company Number: US-PFIZER INC-2012049897

PATIENT
  Sex: Female

DRUGS (5)
  1. ZOLOFT [Suspect]
     Dosage: UNK
  2. PROZAC [Suspect]
     Dosage: UNK
  3. PAXIL [Suspect]
     Dosage: UNK
  4. ATIVAN [Suspect]
     Dosage: UNK
  5. CELEXA [Suspect]
     Dosage: UNK

REACTIONS (3)
  - WEIGHT INCREASED [None]
  - INSOMNIA [None]
  - ANXIETY [None]
